FAERS Safety Report 13640600 (Version 1)
Quarter: 2017Q2

REPORT INFORMATION
  Report Type: Spontaneous
  Country: US (occurrence: US)
  Receive Date: 20170609
  Receipt Date: 20170609
  Transmission Date: 20170830
  Serious: Yes (Hospitalization)
  Sender: FDA-Public Use
  Company Number: None

PATIENT
  Age: 41 Year
  Sex: Male

DRUGS (1)
  1. TOBRAMYCIN 300MG/5ML AKORN, INC. [Suspect]
     Active Substance: TOBRAMYCIN
     Indication: CYSTIC FIBROSIS
     Dosage: 300MG QD VIA NEBULIZER
     Dates: start: 20160922

REACTIONS (2)
  - Drug dose omission [None]
  - Respiratory disorder [None]
